FAERS Safety Report 12060597 (Version 8)
Quarter: 2019Q3

REPORT INFORMATION
  Report Type: Spontaneous
  Country: US (occurrence: US)
  Receive Date: 20160210
  Receipt Date: 20190815
  Transmission Date: 20191004
  Serious: Yes (Other)
  Sender: FDA-Public Use
  Company Number: US-PFIZER INC-2016075238

PATIENT
  Age: 56 Year
  Sex: Male
  Weight: 122 kg

DRUGS (3)
  1. LYRICA [Suspect]
     Active Substance: PREGABALIN
     Indication: PAIN IN EXTREMITY
     Dosage: 300 MG, FOUR TIMES DAILY
     Route: 048
     Dates: start: 2006
  2. LYRICA [Suspect]
     Active Substance: PREGABALIN
     Indication: NEUROPATHY PERIPHERAL
  3. LYRICA [Suspect]
     Active Substance: PREGABALIN
     Indication: NEURALGIA
     Dosage: 150 MG, QID ( FOUR TIMES A DAY)
     Route: 048

REACTIONS (17)
  - Increased appetite [Not Recovered/Not Resolved]
  - Neuralgia [Not Recovered/Not Resolved]
  - Condition aggravated [Not Recovered/Not Resolved]
  - Behaviour disorder [Not Recovered/Not Resolved]
  - Hostility [Not Recovered/Not Resolved]
  - Aggression [Not Recovered/Not Resolved]
  - Suspiciousness [Unknown]
  - Insomnia [Not Recovered/Not Resolved]
  - Sunburn [Not Recovered/Not Resolved]
  - Movement disorder [Not Recovered/Not Resolved]
  - Compulsions [Unknown]
  - Suicidal ideation [Not Recovered/Not Resolved]
  - Drug dependence [Unknown]
  - Prescribed overdose [Unknown]
  - Irritability [Not Recovered/Not Resolved]
  - Weight increased [Not Recovered/Not Resolved]
  - Constipation [Not Recovered/Not Resolved]

NARRATIVE: CASE EVENT DATE: 2006
